FAERS Safety Report 8886735 (Version 1)
Quarter: 2012Q4

REPORT INFORMATION
  Report Type: 
  Country: US (occurrence: US)
  Receive Date: 20121105
  Receipt Date: 20121105
  Transmission Date: 20130627
  Serious: Yes (Other)
  Sender: FDA-Public Use
  Company Number: US-ABBOTT-12P-163-1001785-00

PATIENT
  Sex: Male
  Weight: 136.2 kg

DRUGS (4)
  1. HUMIRA PEN [Suspect]
     Indication: CROHN^S DISEASE
     Dates: start: 2008
  2. ATENOLOL [Concomitant]
     Indication: PALPITATIONS
  3. SYNTHROID [Concomitant]
     Indication: HYPOTHYROIDISM
  4. FLOMAX [Concomitant]
     Indication: PROSTATIC DISORDER

REACTIONS (3)
  - Vision blurred [Not Recovered/Not Resolved]
  - Palpitations [Not Recovered/Not Resolved]
  - Fatigue [Not Recovered/Not Resolved]
